FAERS Safety Report 19872167 (Version 1)
Quarter: 2021Q3

REPORT INFORMATION
  Report Type: Spontaneous
  Country: US (occurrence: US)
  Receive Date: 20210921
  Receipt Date: 20210921
  Transmission Date: 20211014
  Serious: No
  Sender: FDA-Public Use
  Company Number: None

PATIENT
  Age: 67 Year
  Sex: Female
  Weight: 65.77 kg

DRUGS (1)
  1. ORENCIA [Suspect]
     Active Substance: ABATACEPT
     Indication: PSORIATIC ARTHROPATHY
     Dosage: INFUSE MG INTRAVENOUSLY OVER 1 HOUR AT WEEK 0, 2 AND 4 AS DIRECTED
     Route: 042
     Dates: start: 202004

REACTIONS (1)
  - Urinary tract infection [None]
